FAERS Safety Report 15439187 (Version 6)
Quarter: 2020Q2

REPORT INFORMATION
  Report Type: Spontaneous
  Country: US (occurrence: US)
  Receive Date: 20180928
  Receipt Date: 20200601
  Transmission Date: 20200713
  Serious: Yes (Other)
  Sender: FDA-Public Use
  Company Number: US-PFIZER INC-2018391686

PATIENT
  Age: 51 Year
  Sex: Male

DRUGS (2)
  1. LYRICA [Suspect]
     Active Substance: PREGABALIN
     Indication: NEURALGIA
  2. LYRICA [Suspect]
     Active Substance: PREGABALIN
     Indication: SYMPATHETIC NERVE INJURY
     Dosage: 100 MG, 1X/DAY
     Route: 048

REACTIONS (5)
  - Suicide threat [Unknown]
  - Nasopharyngitis [Unknown]
  - Cerebral disorder [Unknown]
  - Paraesthesia [Unknown]
  - Burning sensation [Unknown]
